FAERS Safety Report 14141145 (Version 1)
Quarter: 2017Q4

REPORT INFORMATION
  Report Type: Spontaneous
  Country: US (occurrence: US)
  Receive Date: 20171030
  Receipt Date: 20171030
  Transmission Date: 20180321
  Serious: Yes (Disabling)
  Sender: FDA-Public Use
  Company Number: US-PFIZER INC-2017465076

PATIENT
  Age: 65 Year
  Sex: Female
  Weight: 75.75 kg

DRUGS (1)
  1. IBRANCE [Suspect]
     Active Substance: PALBOCICLIB
     Indication: BREAST CANCER
     Dosage: 125MG CAPSULE ONCE DAILY FOR 3 WEEKS AND THEN ONE WEEK OFF
     Route: 048
     Dates: start: 201706

REACTIONS (1)
  - Paranoia [Not Recovered/Not Resolved]
